FAERS Safety Report 20311124 (Version 1)
Quarter: 2022Q1

REPORT INFORMATION
  Report Type: Spontaneous
  Country: US (occurrence: US)
  Receive Date: 20220107
  Receipt Date: 20220107
  Transmission Date: 20220423
  Serious: Yes (Other)
  Sender: FDA-Public Use
  Company Number: US-ELI_LILLY_AND_COMPANY-US202201000777

PATIENT
  Sex: Male

DRUGS (5)
  1. INSULIN LISPRO [Suspect]
     Active Substance: INSULIN LISPRO
     Indication: Diabetes mellitus
     Dosage: UNK UNK, UNKNOWN
     Route: 065
     Dates: start: 2012
  2. HUMALOG MIX75/25 [Suspect]
     Active Substance: INSULIN LISPRO
     Indication: Diabetes mellitus
     Dosage: 11 U, EACH MORNING
     Route: 058
     Dates: start: 2012
  3. HUMALOG MIX75/25 [Suspect]
     Active Substance: INSULIN LISPRO
     Dosage: 38 U, EACH EVENING(NIGHT)
     Route: 058
  4. HUMALOG MIX75/25 [Suspect]
     Active Substance: INSULIN LISPRO
     Dosage: UNK UNK, UNKNOWN
     Route: 065
  5. NOVOLOG [Concomitant]
     Active Substance: INSULIN ASPART
     Indication: Diabetes mellitus

REACTIONS (10)
  - Eye haemorrhage [Recovered/Resolved]
  - Muscle spasms [Recovering/Resolving]
  - Blood glucose increased [Recovered/Resolved]
  - Pain [Recovering/Resolving]
  - Wound [Recovered/Resolved]
  - Peripheral vascular disorder [Recovered/Resolved]
  - Skin infection [Recovered/Resolved]
  - Retinopathy [Unknown]
  - Cataract [Unknown]
  - Injury [Unknown]
